FAERS Safety Report 6064861-5 (Version None)
Quarter: 2009Q1

REPORT INFORMATION
  Report Type: 
  Country: None (occurrence: None)
  Receive Date: 20090204
  Receipt Date: 20090127
  Transmission Date: 20090719
  Serious: Yes (Hospitalization)
  Sender: FDA-Public Use
  Company Number: US-JNJFOC-20090107265

PATIENT
  Sex: Female
  Weight: 74.84 kg

DRUGS (3)
  1. FENTANYL TRANSDERMAL SYSTEM [Suspect]
     Indication: MUSCLE DISORDER
     Route: 062
  2. VITAMINS [Concomitant]
     Route: 048
  3. LITHIUM CARBONATE [Concomitant]
     Indication: BIPOLAR DISORDER
     Route: 048

REACTIONS (4)
  - CONSTIPATION [None]
  - DEPRESSION [None]
  - DRY MOUTH [None]
  - PANIC ATTACK [None]
